FAERS Safety Report 25461403 (Version 1)
Quarter: 2025Q2

REPORT INFORMATION
  Report Type: Spontaneous
  Country: ES (occurrence: ES)
  Receive Date: 20250620
  Receipt Date: 20250620
  Transmission Date: 20250716
  Serious: Yes (Life-Threatening, Hospitalization)
  Sender: MYLAN
  Company Number: ES-MYLANLABS-2025M1051726

PATIENT
  Age: 12 Year
  Sex: Female
  Weight: 40 kg

DRUGS (16)
  1. EPINEPHRINE [Suspect]
     Active Substance: EPINEPHRINE
     Indication: Cardiac failure
  2. EPINEPHRINE [Suspect]
     Active Substance: EPINEPHRINE
     Route: 065
  3. EPINEPHRINE [Suspect]
     Active Substance: EPINEPHRINE
     Route: 065
  4. EPINEPHRINE [Suspect]
     Active Substance: EPINEPHRINE
  5. MILRINONE [Suspect]
     Active Substance: MILRINONE
     Indication: Cardiac failure
  6. MILRINONE [Suspect]
     Active Substance: MILRINONE
     Route: 065
  7. MILRINONE [Suspect]
     Active Substance: MILRINONE
     Route: 065
  8. MILRINONE [Suspect]
     Active Substance: MILRINONE
  9. ADRIAMYCIN [Concomitant]
     Active Substance: DOXORUBICIN HYDROCHLORIDE
     Indication: Osteosarcoma
  10. ADRIAMYCIN [Concomitant]
     Active Substance: DOXORUBICIN HYDROCHLORIDE
     Route: 065
  11. ADRIAMYCIN [Concomitant]
     Active Substance: DOXORUBICIN HYDROCHLORIDE
     Route: 065
  12. ADRIAMYCIN [Concomitant]
     Active Substance: DOXORUBICIN HYDROCHLORIDE
  13. METHOTREXATE [Concomitant]
     Active Substance: METHOTREXATE
     Indication: Osteosarcoma
  14. METHOTREXATE [Concomitant]
     Active Substance: METHOTREXATE
     Route: 065
  15. METHOTREXATE [Concomitant]
     Active Substance: METHOTREXATE
     Route: 065
  16. METHOTREXATE [Concomitant]
     Active Substance: METHOTREXATE

REACTIONS (1)
  - Drug ineffective [Unknown]
